FAERS Safety Report 5926684-4 (Version None)
Quarter: 2008Q4

REPORT INFORMATION
  Report Type: 
  Country: None (occurrence: None)
  Receive Date: 20081017
  Receipt Date: 20080924
  Transmission Date: 20090506
  Serious: Yes (Hospitalization)
  Sender: FDA-Public Use
  Company Number: RENA-1000243

PATIENT
  Age: 26 Year
  Sex: Female

DRUGS (9)
  1. RENAGEL [Suspect]
     Indication: HYPERPHOSPHATAEMIA
     Dosage: 0.75 G, TID, ORAL, 1.0 G, TID, ORAL, 1.25 G, TID, ORAL, 1.5 G, TID, ORAL
     Route: 048
     Dates: start: 20040119, end: 20040930
  2. RENAGEL [Suspect]
     Indication: HYPERPHOSPHATAEMIA
     Dosage: 0.75 G, TID, ORAL, 1.0 G, TID, ORAL, 1.25 G, TID, ORAL, 1.5 G, TID, ORAL
     Route: 048
     Dates: start: 20041014, end: 20051225
  3. RENAGEL [Suspect]
     Indication: HYPERPHOSPHATAEMIA
     Dosage: 0.75 G, TID, ORAL, 1.0 G, TID, ORAL, 1.25 G, TID, ORAL, 1.5 G, TID, ORAL
     Route: 048
     Dates: start: 20051208, end: 20070804
  4. RENAGEL [Suspect]
     Indication: HYPERPHOSPHATAEMIA
     Dosage: 0.75 G, TID, ORAL, 1.0 G, TID, ORAL, 1.25 G, TID, ORAL, 1.5 G, TID, ORAL
     Route: 048
     Dates: start: 20070908, end: 20080412
  5. CALCIUM CARBONATE (CALCIUM CARBONATE) [Suspect]
     Indication: DRUG USE FOR UNKNOWN INDICATION
     Dosage: 0.67 G, TID
     Dates: start: 20051208
  6. BUSCOPAN (SCOPOLAMINE BUTYLBROMIDE) UNKNOWN [Suspect]
     Indication: DRUG USE FOR UNKNOWN INDICATION
     Dosage: 10 MG
     Dates: start: 20080514
  7. DOXAZOSIN MESYLATE [Concomitant]
  8. ADALAT [Concomitant]
  9. LOSARTAN POTASSIUM [Concomitant]

REACTIONS (7)
  - BLOOD ALKALINE PHOSPHATASE INCREASED [None]
  - BLOOD CREATININE INCREASED [None]
  - BLOOD UREA INCREASED [None]
  - DIVERTICULITIS [None]
  - HAEMOGLOBIN DECREASED [None]
  - PLATELET COUNT DECREASED [None]
  - RED BLOOD CELL COUNT DECREASED [None]
